FAERS Safety Report 14201121 (Version 1)
Quarter: 2017Q4

REPORT INFORMATION
  Report Type: Spontaneous
  Country: US (occurrence: US)
  Receive Date: 20171117
  Receipt Date: 20171117
  Transmission Date: 20180321
  Serious: No
  Sender: FDA-Public Use
  Company Number: US-NOVOPROD-513802

PATIENT
  Age: 24 Year
  Sex: Male
  Weight: 66.67 kg

DRUGS (1)
  1. NOVOLOG [Suspect]
     Active Substance: INSULIN ASPART
     Indication: TYPE 1 DIABETES MELLITUS
     Dosage: PUMP
     Route: 058

REACTIONS (6)
  - Abnormal loss of weight [Recovering/Resolving]
  - Abdominal pain upper [Recovered/Resolved]
  - Product quality issue [Recovered/Resolved]
  - Gastrointestinal disorder [Recovered/Resolved]
  - Decreased appetite [Recovered/Resolved]
  - Blood glucose increased [Recovered/Resolved]

NARRATIVE: CASE EVENT DATE: 20161003
